FAERS Safety Report 22019458 (Version 1)
Quarter: 2023Q1

REPORT INFORMATION
  Report Type: Report from Study
  Country: US (occurrence: US)
  Receive Date: 20230222
  Receipt Date: 20230222
  Transmission Date: 20230418
  Serious: Yes (Other)
  Sender: FDA-Public Use
  Company Number: US-RECORDATI RARE DISEASE INC.-2022004550

PATIENT

DRUGS (9)
  1. CARBAGLU [Suspect]
     Active Substance: CARGLUMIC ACID
     Indication: Urea cycle disorder
     Dosage: 600 MILLIGRAM, QID
     Dates: start: 20170422
  2. CARBAGLU [Suspect]
     Active Substance: CARGLUMIC ACID
     Indication: Hyperglycinaemia
     Dosage: 800 MILLIGRAM, QID
     Route: 048
  3. CARBAGLU [Suspect]
     Active Substance: CARGLUMIC ACID
     Dosage: 800 MILLIGRAM, QID (4 CAPSULES FOUR TIMES A DAY)
     Route: 048
  4. MITAPIVAT [Suspect]
     Active Substance: MITAPIVAT
     Indication: Product used for unknown indication
     Dosage: UNK
  5. RIFAXIMIN [Suspect]
     Active Substance: RIFAXIMIN
     Indication: Product used for unknown indication
     Dosage: UNK
  6. OMEPRAZOLE [Concomitant]
     Active Substance: OMEPRAZOLE
     Indication: Product used for unknown indication
  7. SODIUM [Concomitant]
     Active Substance: SODIUM
     Indication: Product used for unknown indication
     Dosage: UNK
  8. LEVOCARNITINE [Concomitant]
     Active Substance: LEVOCARNITINE
     Indication: Product used for unknown indication
     Dosage: UNK
  9. VITAMIN D3 [Concomitant]
     Active Substance: CHOLECALCIFEROL
     Indication: Product used for unknown indication
     Dosage: UNK

REACTIONS (2)
  - Haemolytic anaemia [Recovering/Resolving]
  - Rhinorrhoea [Unknown]
